FAERS Safety Report 9803122 (Version 2)
Quarter: 2014Q1

REPORT INFORMATION
  Report Type: Spontaneous
  Country: DE (occurrence: DE)
  Receive Date: 20140108
  Receipt Date: 20140117
  Transmission Date: 20141002
  Serious: Yes (Other)
  Sender: FDA-Public Use
  Company Number: DE-UCBSA-107936

PATIENT
  Age: 40 Year
  Sex: Male
  Weight: 85 kg

DRUGS (5)
  1. KEPPRA [Suspect]
     Dosage: TOTAL INTAKE: 10000 MG; 1000 MG TABLETS (10 TABLETS); ORAL BUT NOT ASSURED
     Dates: start: 20140101
  2. FLECAINID [Suspect]
     Dosage: TOTAL DOSE INTAKE: 3000 MG (100MG, 30 TABLETS); ORAL BUT NOT ASSURED
     Dates: start: 20140101
  3. BELOC ZOK [Suspect]
     Dosage: TOTAL DOSE INTAKE: 950 MG (10 TABLETS); ORAL BUT NOT ASSURED
     Dates: start: 20140101
  4. PARADAXA [Suspect]
     Dosage: TOTAL DOSE INTAKE:1500 MG (150 MG , 10 CAPSULES); ORAL BUT NOT ASSURED
     Dates: start: 20140101
  5. PANTOZOL [Suspect]
     Dosage: TOTAL DOSE INTAKE : 1000 MG (25 TABLETS OF 40 MG); ORAL BUT NOT ASSURED
     Dates: start: 20140101

REACTIONS (4)
  - Suicide attempt [Unknown]
  - Hypotension [Unknown]
  - Overdose [Unknown]
  - Malaise [Not Recovered/Not Resolved]
